FAERS Safety Report 5232858-0 (Version None)
Quarter: 2007Q1

REPORT INFORMATION
  Report Type: 
  Country: None (occurrence: None)
  Receive Date: 20070207
  Receipt Date: 20070129
  Transmission Date: 20070707
  Serious: Yes (Death)
  Sender: FDA-Public Use
  Company Number: US-ABBOTT-07P-163-0357569-00

PATIENT
  Sex: Female
  Weight: 130 kg

DRUGS (2)
  1. SYNTHROID [Suspect]
     Indication: HYPOTHYROIDISM
     Route: 048
     Dates: start: 20040101, end: 20050101
  2. SYNTHROID [Suspect]
     Route: 048
     Dates: start: 19720501, end: 19850101

REACTIONS (1)
  - MYOCARDIAL INFARCTION [None]
